FAERS Safety Report 16045962 (Version 1)
Quarter: 2019Q1

REPORT INFORMATION
  Report Type: Spontaneous
  Country: US (occurrence: US)
  Receive Date: 20190206
  Receipt Date: 20190206
  Transmission Date: 20190418
  Serious: Yes (Hospitalization)
  Sender: FDA-Public Use
  Company Number: None

PATIENT
  Age: 73 Year
  Sex: Male
  Weight: 167 kg

DRUGS (2)
  1. FUROSEMIDE. [Suspect]
     Active Substance: FUROSEMIDE
     Indication: CARDIORENAL SYNDROME
     Route: 048
     Dates: start: 20180215, end: 20180629
  2. METOLAZONE. [Suspect]
     Active Substance: METOLAZONE
     Route: 048
     Dates: start: 20180320, end: 20180629

REACTIONS (3)
  - Syncope [None]
  - Dehydration [None]
  - Hypotension [None]

NARRATIVE: CASE EVENT DATE: 20180623
